FAERS Safety Report 4302380-4 (Version None)
Quarter: 2004Q1

REPORT INFORMATION
  Report Type: 
  Country: None (occurrence: None)
  Receive Date: 20040220
  Receipt Date: 20031217
  Transmission Date: 20041129
  Serious: Yes (Hospitalization)
  Sender: FDA-Public Use
  Company Number: F04200300228

PATIENT
  Age: 76 Year
  Sex: Female

DRUGS (8)
  1. ARIXTRA [Suspect]
     Indication: KNEE ARTHROPLASTY
     Dosage: 2.5 MG OD SUBCUTANEOUS
     Route: 058
     Dates: start: 20031208, end: 20031216
  2. ARIXTRA [Suspect]
     Indication: THROMBOSIS PROPHYLAXIS
     Dosage: 2.5 MG OD SUBCUTANEOUS
     Route: 058
     Dates: start: 20031208, end: 20031216
  3. VOLTAREN [Concomitant]
  4. OMEPRAZOLE [Concomitant]
  5. OXAZEPAM 10 (OXAZEPAM) [Concomitant]
  6. TRISEQUENS (ESTRADIOL/NORESTHISTERONE) [Concomitant]
  7. ATARAX [Concomitant]
  8. CERTOPARIN (CERTOPARIN SODIUM) [Concomitant]

REACTIONS (2)
  - HAEMATOCHEZIA [None]
  - LOWER GASTROINTESTINAL HAEMORRHAGE [None]
